FAERS Safety Report 10375394 (Version 5)
Quarter: 2015Q1

REPORT INFORMATION
  Report Type: Spontaneous
  Country: US (occurrence: US)
  Receive Date: 20140811
  Receipt Date: 20150223
  Transmission Date: 20150720
  Serious: Yes (Hospitalization, Other)
  Sender: FDA-Public Use
  Company Number: US-BAYER-2014-118314

PATIENT
  Age: 28 Year
  Sex: Female
  Weight: 46.71 kg

DRUGS (2)
  1. MIRENA [Suspect]
     Active Substance: LEVONORGESTREL
     Indication: CONTRACEPTION
     Dosage: 20 MCG/24HR, CONT
     Route: 015
     Dates: start: 20110407, end: 20131014
  2. METHOTREXATE [Concomitant]
     Active Substance: METHOTREXATE

REACTIONS (20)
  - Infertility female [None]
  - Ovarian cyst ruptured [None]
  - Dizziness [None]
  - Uterine perforation [None]
  - Injury [None]
  - Anxiety [None]
  - Musculoskeletal pain [None]
  - Asthma [None]
  - Ectopic pregnancy with contraceptive device [None]
  - Abdominal pain lower [None]
  - Device difficult to use [None]
  - Genital haemorrhage [None]
  - Palpitations [None]
  - Abortion of ectopic pregnancy [None]
  - Drug ineffective [None]
  - Dyspareunia [None]
  - Menorrhagia [None]
  - Pain [None]
  - Depression [None]
  - Dyspnoea [None]

NARRATIVE: CASE EVENT DATE: 201308
